FAERS Safety Report 4578526-X (Version None)
Quarter: 2005Q1

REPORT INFORMATION
  Report Type: 
  Country: None (occurrence: None)
  Receive Date: 20050204
  Receipt Date: 20050204
  Transmission Date: 20050727
  Serious: Yes (Other)
  Sender: FDA-Public Use
  Company Number: None

PATIENT
  Sex: Female

DRUGS (6)
  1. LEVAQUIN [Suspect]
     Indication: LARYNGOPHARYNGITIS
     Dosage: 750 MG PO ONCE DAILY
     Route: 048
     Dates: start: 20050115, end: 20050121
  2. LEVAQUIN [Suspect]
     Indication: STAPHYLOCOCCAL INFECTION
     Dosage: 750 MG PO ONCE DAILY
     Route: 048
     Dates: start: 20050115, end: 20050121
  3. PROTONIX [Concomitant]
  4. METFORMIN [Concomitant]
  5. FLOVENT [Concomitant]
  6. MDI [Concomitant]

REACTIONS (2)
  - ARTHRALGIA [None]
  - JOINT SWELLING [None]
